FAERS Safety Report 13182222 (Version 3)
Quarter: 2017Q1

REPORT INFORMATION
  Report Type: Spontaneous
  Country: US (occurrence: US)
  Receive Date: 20170203
  Receipt Date: 20170324
  Transmission Date: 20170428
  Serious: Yes (Other)
  Sender: FDA-Public Use
  Company Number: US-GLAXOSMITHKLINE-US2017014804

PATIENT
  Sex: Male

DRUGS (5)
  1. COREG CR [Suspect]
     Active Substance: CARVEDILOL PHOSPHATE
     Indication: CARDIOMYOPATHY
     Dosage: 40 MG, UNK
  2. COZAAR [Suspect]
     Active Substance: LOSARTAN POTASSIUM
     Indication: CARDIOMYOPATHY
  3. DIGOXIN. [Suspect]
     Active Substance: DIGOXIN
     Indication: CARDIOMYOPATHY
  4. COREG CR [Suspect]
     Active Substance: CARVEDILOL PHOSPHATE
     Dosage: UNK
  5. COREG CR [Suspect]
     Active Substance: CARVEDILOL PHOSPHATE
     Indication: EJECTION FRACTION DECREASED
     Dosage: 20 MG, 1D
     Route: 048

REACTIONS (4)
  - Hypertension [Not Recovered/Not Resolved]
  - Cardiac resynchronisation therapy [Unknown]
  - Blood pressure increased [Unknown]
  - Product quality issue [Unknown]

NARRATIVE: CASE EVENT DATE: 2012
